FAERS Safety Report 9449824 (Version 2)
Quarter: 2013Q4

REPORT INFORMATION
  Report Type: Report from Study
  Country: US (occurrence: US)
  Receive Date: 20130809
  Receipt Date: 20131003
  Transmission Date: 20140711
  Serious: Yes (Hospitalization)
  Sender: FDA-Public Use
  Company Number: PHEH2013US016732

PATIENT
  Age: 73 Year
  Sex: Male

DRUGS (1)
  1. EXELON PATCH [Suspect]
     Indication: DEMENTIA ALZHEIMER^S TYPE
     Dosage: 9.5 MG (PATCH 10 CM2), DAILY
     Route: 062

REACTIONS (5)
  - Ankle fracture [Unknown]
  - Fall [Unknown]
  - Muscular weakness [Unknown]
  - Parkinson^s disease [Unknown]
  - Concomitant disease progression [Unknown]
